FAERS Safety Report 12994473 (Version 1)
Quarter: 2016Q4

REPORT INFORMATION
  Report Type: Report from Study
  Country: None (occurrence: FR)
  Receive Date: 20161202
  Receipt Date: 20161202
  Transmission Date: 20170207
  Serious: Yes (Hospitalization)
  Sender: FDA-Public Use
  Company Number: FR-ABBVIE-16K-056-1795531-00

PATIENT
  Age: 67 Year
  Sex: Female

DRUGS (1)
  1. DUODOPA [Suspect]
     Active Substance: CARBIDOPA\LEVODOPA
     Indication: PRODUCT USED FOR UNKNOWN INDICATION
     Dosage: MD:15.5ML,ED:1ML,CD DAY FLOW RATE:6.7ML/H(7AM-9.30PM),CD NIGHT FLOW RATE:1ML/H(9.30PM-7AM)
     Route: 050
     Dates: start: 20161028

REACTIONS (1)
  - Peritonitis [Unknown]

NARRATIVE: CASE EVENT DATE: 2016
